FAERS Safety Report 11073233 (Version 1)
Quarter: 2015Q2

REPORT INFORMATION
  Report Type: Spontaneous
  Country: CL (occurrence: CL)
  Receive Date: 20150428
  Receipt Date: 20150428
  Transmission Date: 20150821
  Serious: Yes (Hospitalization)
  Sender: FDA-Public Use
  Company Number: CL-009507513-1504CHL023142

PATIENT
  Age: 24 Year
  Sex: Female

DRUGS (1)
  1. NUVARING [Suspect]
     Active Substance: ETHINYL ESTRADIOL\ETONOGESTREL
     Indication: CHEMICAL CONTRACEPTION
     Dosage: 1 RING, MONTHLY AND PERMANENT
     Route: 067

REACTIONS (3)
  - Vulvovaginal burning sensation [Unknown]
  - Gastrointestinal disorder [Unknown]
  - Vulvovaginal swelling [Unknown]
